FAERS Safety Report 8013791-8 (Version None)
Quarter: 2011Q4

REPORT INFORMATION
  Report Type: 
  Country: None (occurrence: None)
  Receive Date: 20111229
  Receipt Date: 20111222
  Transmission Date: 20120403
  Serious: No
  Sender: FDA-Public Use
  Company Number: US-B.I. PHARMACEUTICALS,INC./RIDGEFIELD-2011-BP-28637BP

PATIENT
  Sex: Male

DRUGS (16)
  1. NORVASC [Concomitant]
     Indication: CARDIAC DISORDER
     Dosage: 5 MG
     Route: 048
  2. ASPIRIN [Concomitant]
     Indication: CARDIAC DISORDER
     Dosage: 81 MG
     Route: 048
  3. CYMBALTA [Concomitant]
     Dosage: 20 MG
     Route: 048
  4. NITROGLYCERIN [Concomitant]
     Indication: ANGINA UNSTABLE
     Dosage: 0.4 MG
     Route: 048
  5. HYDROCHLOROTHIAZIDE [Concomitant]
     Indication: HYPERTENSION
     Dosage: 25 MG
     Route: 048
  6. TUSSINEX [Concomitant]
     Indication: CHRONIC OBSTRUCTIVE PULMONARY DISEASE
     Route: 048
  7. SPIRIVA [Suspect]
     Dosage: 18 MCG
     Route: 048
     Dates: start: 20111101
  8. ATENOLOL [Concomitant]
     Indication: HYPERTENSION
     Dosage: 25 MG
     Route: 048
  9. CYMBALTA [Concomitant]
     Indication: DEPRESSION
     Dosage: 60 MG
     Route: 048
  10. NEXIUM [Concomitant]
     Indication: REFLUX GASTRITIS
     Dosage: 40 MG
     Route: 048
  11. ADVAIR DISKUS 100/50 [Concomitant]
     Indication: CHRONIC OBSTRUCTIVE PULMONARY DISEASE
     Route: 055
  12. ALBUTEROL [Concomitant]
     Indication: CHRONIC OBSTRUCTIVE PULMONARY DISEASE
     Dosage: 90 MG
     Route: 055
  13. SPIRIVA [Suspect]
     Indication: CHRONIC OBSTRUCTIVE PULMONARY DISEASE
     Dosage: 18 MCG
     Route: 055
     Dates: start: 20111101
  14. NITROGLYCERIN [Concomitant]
     Dosage: 0.4 MG
     Route: 048
  15. MULTI-VITAMIN [Concomitant]
     Indication: SUPPLEMENTATION THERAPY
     Route: 048
  16. LIPITOR [Concomitant]
     Indication: BLOOD CHOLESTEROL
     Dosage: 20 MG
     Route: 048

REACTIONS (2)
  - DRY MOUTH [None]
  - INCORRECT ROUTE OF DRUG ADMINISTRATION [None]
